FAERS Safety Report 19676723 (Version 1)
Quarter: 2021Q3

REPORT INFORMATION
  Report Type: Report from Study
  Country: None (occurrence: US)
  Receive Date: 20210810
  Receipt Date: 20210810
  Transmission Date: 20211014
  Serious: Yes (Other)
  Sender: FDA-Public Use
  Company Number: US-ABBVIE-21K-163-4026703-00

PATIENT
  Sex: Female

DRUGS (1)
  1. SKYRIZI [Suspect]
     Active Substance: RISANKIZUMAB-RZAA
     Indication: PSORIASIS
     Dosage: INJECT 150 MILLIGRAM (2 SYRINGES), STARTING ON WEEK 16
     Route: 058

REACTIONS (3)
  - Emotional distress [Unknown]
  - Stress [Unknown]
  - Myocardial infarction [Unknown]
